FAERS Safety Report 6650769-0 (Version None)
Quarter: 2010Q1

REPORT INFORMATION
  Report Type: 
  Country: None (occurrence: None)
  Receive Date: 20100325
  Receipt Date: 20100302
  Transmission Date: 20100710
  Serious: No
  Sender: FDA-Public Use
  Company Number: US-BIOGENIDEC-2010BI003741

PATIENT
  Age: 42 Year
  Sex: Female

DRUGS (1)
  1. TYSABRI [Suspect]
     Indication: MULTIPLE SCLEROSIS
     Route: 042
     Dates: start: 20090708

REACTIONS (8)
  - CONTUSION [None]
  - JOINT DISLOCATION [None]
  - MUSCLE INJURY [None]
  - MUSCLE RUPTURE [None]
  - MUSCLE STRAIN [None]
  - NERVE INJURY [None]
  - ROAD TRAFFIC ACCIDENT [None]
  - TENDON RUPTURE [None]
